FAERS Safety Report 9610880 (Version 1)
Quarter: 2013Q4

REPORT INFORMATION
  Report Type: Report from Study
  Country: JP (occurrence: JP)
  Receive Date: 20131009
  Receipt Date: 20131009
  Transmission Date: 20140711
  Serious: Yes (Other)
  Sender: FDA-Public Use
  Company Number: JP-GILEAD-2013-0085087

PATIENT
  Age: 34 Year
  Sex: Male

DRUGS (10)
  1. EMTRICITABINE/TENOFOVIR DISOPROXIL FUMARATE [Suspect]
     Indication: HIV INFECTION
     Dosage: 1 DF, QD
     Route: 048
     Dates: start: 20061010, end: 20130211
  2. EMTRICITABINE/TENOFOVIR DISOPROXIL FUMARATE [Suspect]
     Dosage: 1 DF, QD
     Route: 048
     Dates: start: 20050719, end: 20060802
  3. ISENTRESS [Concomitant]
     Indication: HIV INFECTION
     Route: 048
     Dates: start: 20120501
  4. TRACLEER                           /01587701/ [Concomitant]
     Indication: PULMONARY HYPERTENSION
     Dosage: 125 MG, BID
     Route: 048
     Dates: start: 20070201
  5. TRACLEER                           /01587701/ [Concomitant]
     Dosage: 62.5 MG, BID
     Route: 048
     Dates: start: 20060206, end: 20070131
  6. NOVACT M FUJISAWA [Concomitant]
     Indication: FACTOR IX DEFICIENCY
     Dosage: 1000 IU, BID
     Route: 042
     Dates: start: 20090408
  7. NOVACT M FUJISAWA [Concomitant]
     Route: 042
     Dates: start: 20050401, end: 20090407
  8. DEPAS [Concomitant]
     Indication: INSOMNIA
     Route: 048
     Dates: start: 20090414
  9. BERASUS [Concomitant]
     Indication: PULMONARY HYPERTENSION
     Dosage: 120 ?G, BID
     Route: 048
     Dates: start: 20120911
  10. BERASUS [Concomitant]
     Route: 048
     Dates: start: 20120306, end: 20120910

REACTIONS (1)
  - Osteoporosis [Not Recovered/Not Resolved]
